FAERS Safety Report 8299441-4 (Version None)
Quarter: 2012Q2

REPORT INFORMATION
  Report Type: 
  Country: None (occurrence: None)
  Receive Date: 20120419
  Receipt Date: 20120410
  Transmission Date: 20120825
  Serious: Yes (Death, Other)
  Sender: FDA-Public Use
  Company Number: IE-FRI-1000028481

PATIENT
  Sex: Female

DRUGS (2)
  1. MEMANTINE HCL [Suspect]
     Indication: DEMENTIA ALZHEIMER'S TYPE
     Dosage: 20 MG
     Dates: start: 20111223, end: 20120101
  2. WARFARIN SODIUM [Concomitant]

REACTIONS (2)
  - DEATH [None]
  - URINARY TRACT INFECTION [None]
